FAERS Safety Report 14159546 (Version 6)
Quarter: 2020Q4

REPORT INFORMATION
  Report Type: Spontaneous
  Country: US (occurrence: US)
  Receive Date: 20171106
  Receipt Date: 20201022
  Transmission Date: 20210113
  Serious: Yes (Other)
  Sender: FDA-Public Use
  Company Number: US-PFIZER INC-2017471664

PATIENT
  Age: 40 Year
  Sex: Female
  Weight: 78.01 kg

DRUGS (6)
  1. VALIUM [Concomitant]
     Active Substance: DIAZEPAM
     Indication: RETINAL MIGRAINE
     Dosage: 5 MG, UNK (HAD TO TAKE 2 INSTEAD OF 1 TABLET)
     Dates: start: 1984
  2. PREMARIN [Suspect]
     Active Substance: ESTROGENS, CONJUGATED
     Indication: HYSTERECTOMY
     Dosage: 0.625 MG, ONCE A DAY
     Route: 048
     Dates: start: 1984
  3. PREMARIN [Concomitant]
     Active Substance: ESTROGENS, CONJUGATED
     Indication: LICHEN SCLEROSUS
     Dosage: 0.625 MG, UNK
     Dates: start: 2014
  4. PREMARIN [Suspect]
     Active Substance: ESTROGENS, CONJUGATED
     Dosage: 1 DF (1 TABLET), ALTERNATE DAY
     Dates: start: 201706, end: 20170901
  5. CLOBETASOL PROPIONATE. [Concomitant]
     Active Substance: CLOBETASOL PROPIONATE
     Indication: LICHEN SCLEROSUS
     Dosage: UNK
     Dates: start: 2014
  6. PREMARIN [Suspect]
     Active Substance: ESTROGENS, CONJUGATED
     Dosage: 1 DF, WEEKLY (FOR 3 WEEKS)

REACTIONS (11)
  - Panic attack [Unknown]
  - Intentional product misuse [Unknown]
  - Blood pressure increased [Not Recovered/Not Resolved]
  - Feeling abnormal [Unknown]
  - Night sweats [Unknown]
  - Vulval disorder [Unknown]
  - Weight increased [Not Recovered/Not Resolved]
  - Emotional disorder [Unknown]
  - Hot flush [Unknown]
  - Crying [Unknown]
  - Irritability [Unknown]

NARRATIVE: CASE EVENT DATE: 201707
